FAERS Safety Report 4866262-1 (Version None)
Quarter: 2005Q4

REPORT INFORMATION
  Report Type: 
  Country: None (occurrence: None)
  Receive Date: 20051220
  Receipt Date: 20051205
  Transmission Date: 20060501
  Serious: Yes (Hospitalization)
  Sender: FDA-Public Use
  Company Number: 8013730

PATIENT
  Age: 46 Year
  Sex: Female
  Weight: 80 kg

DRUGS (1)
  1. KEPPRA [Suspect]
     Dosage: 500MG/D PO
     Route: 048
     Dates: start: 20041123, end: 20050415

REACTIONS (2)
  - ERYTHEMA [None]
  - SKIN LESION [None]
